FAERS Safety Report 14970201 (Version 1)
Quarter: 2018Q2

REPORT INFORMATION
  Report Type: Spontaneous
  Country: US (occurrence: US)
  Receive Date: 20180512
  Receipt Date: 20180512
  Transmission Date: 20180711
  Serious: Yes (Other)
  Sender: FDA-Public Use
  Company Number: None

PATIENT
  Age: 30 Year
  Sex: Female
  Weight: 72.57 kg

DRUGS (2)
  1. CHLORAPREP [Suspect]
     Active Substance: CHLORHEXIDINE GLUCONATE\ISOPROPYL ALCOHOL
     Indication: PREOPERATIVE CARE
     Dosage: ?          OTHER FREQUENCY:DURING SURGERY;?
     Route: 062
     Dates: start: 19870424, end: 19870424
  2. ALCOHOL 70% [Concomitant]

REACTIONS (2)
  - Product packaging issue [None]
  - Product label issue [None]

NARRATIVE: CASE EVENT DATE: 20180424
